FAERS Safety Report 7939025-8 (Version None)
Quarter: 2011Q4

REPORT INFORMATION
  Report Type: 
  Country: None (occurrence: None)
  Receive Date: 20111124
  Receipt Date: 20111123
  Transmission Date: 20120403
  Serious: Yes (Hospitalization, Congenital Anomaly, Other)
  Sender: FDA-Public Use
  Company Number: US-PFIZER INC-2011104669

PATIENT
  Sex: Male
  Weight: 3.9 kg

DRUGS (1)
  1. ZOLOFT [Suspect]
     Dosage: UNK
     Route: 064

REACTIONS (6)
  - CONGENITAL CHOROID PLEXUS CYST [None]
  - HYPERTELORISM OF ORBIT [None]
  - CONVULSION [None]
  - CRANIOSYNOSTOSIS [None]
  - READING DISORDER [None]
  - FOETAL EXPOSURE DURING PREGNANCY [None]
